FAERS Safety Report 7729554-4 (Version None)
Quarter: 2011Q3

REPORT INFORMATION
  Report Type: 
  Country: None (occurrence: None)
  Receive Date: 20110906
  Receipt Date: 20110825
  Transmission Date: 20111222
  Serious: Yes (Hospitalization, Other)
  Sender: FDA-Public Use
  Company Number: CH-JNJFOC-20110810891

PATIENT
  Age: 22 Year
  Sex: Female

DRUGS (2)
  1. TOPAMAX [Suspect]
     Indication: EPILEPSY
     Route: 048
     Dates: start: 20100803, end: 20110403
  2. TOPAMAX [Suspect]
     Route: 048
     Dates: start: 20110404

REACTIONS (3)
  - PROLONGED PREGNANCY [None]
  - FAILED INDUCTION OF LABOUR [None]
  - MATERNAL EXPOSURE DURING PREGNANCY [None]
